FAERS Safety Report 10857028 (Version 1)
Quarter: 2015Q1

REPORT INFORMATION
  Report Type: Spontaneous
  Country: US (occurrence: US)
  Receive Date: 20150223
  Receipt Date: 20150223
  Transmission Date: 20150721
  Serious: Yes (Congenital Anomaly)
  Sender: FDA-Public Use
  Company Number: US-APOTEX-2014AP001153

PATIENT
  Age: 0 Day
  Sex: Female

DRUGS (1)
  1. PAROXETINE HYDROCHLORIDE. [Suspect]
     Active Substance: PAROXETINE HYDROCHLORIDE
     Indication: DEPRESSION

REACTIONS (5)
  - Patent ductus arteriosus [Unknown]
  - Bicuspid aortic valve [Unknown]
  - Foetal exposure during pregnancy [Unknown]
  - Congenital aortic valve stenosis [Unknown]
  - Coarctation of the aorta [Unknown]

NARRATIVE: CASE EVENT DATE: 19950129
